FAERS Safety Report 7125588-1 (Version None)
Quarter: 2010Q4

REPORT INFORMATION
  Report Type: 
  Country: None (occurrence: None)
  Receive Date: 20101129
  Receipt Date: 20101011
  Transmission Date: 20110411
  Serious: No
  Sender: FDA-Public Use
  Company Number: US-MYLANLABS-2010S1018765

PATIENT

DRUGS (1)
  1. LAMOTRIGINE [Suspect]

REACTIONS (1)
  - DRUG EFFECT DECREASED [None]
